FAERS Safety Report 17267220 (Version 1)
Quarter: 2019Q4

REPORT INFORMATION
  Report Type: Spontaneous
  Country: US (occurrence: US)
  Receive Date: 20191220
  Receipt Date: 20191220
  Transmission Date: 20200122
  Serious: No
  Sender: FDA-Public Use
  Company Number: None

PATIENT
  Age: 77 Year
  Sex: Female

DRUGS (1)
  1. GLATIRAMER 20MG PFS INJ  (30/BOX) [Suspect]
     Active Substance: GLATIRAMER
     Route: 058
     Dates: start: 201912

REACTIONS (5)
  - Nausea [None]
  - Hyperhidrosis [None]
  - Blood pressure decreased [None]
  - Peripheral coldness [None]
  - Dizziness [None]

NARRATIVE: CASE EVENT DATE: 20191220
